FAERS Safety Report 4355311-5 (Version None)
Quarter: 2004Q2

REPORT INFORMATION
  Report Type: 
  Country: None (occurrence: None)
  Receive Date: 20040510
  Receipt Date: 20030325
  Transmission Date: 20050107
  Serious: Yes (Hospitalization)
  Sender: FDA-Public Use
  Company Number: FR-ROCHE-334525

PATIENT
  Age: 28 Year
  Sex: Female
  Weight: 65 kg

DRUGS (9)
  1. DACLIZUMAB [Suspect]
     Route: 042
     Dates: start: 20020403, end: 20020403
  2. DACLIZUMAB [Suspect]
     Route: 042
     Dates: start: 20020417, end: 20020417
  3. MYCOPHENOLATE MOFETIL [Suspect]
     Route: 048
     Dates: start: 20020403, end: 20030403
  4. MYCOPHENOLATE MOFETIL [Suspect]
     Route: 048
     Dates: start: 20030530
  5. NEORAL [Suspect]
     Route: 048
     Dates: start: 20020406
  6. NEORAL [Suspect]
     Route: 048
     Dates: start: 20020925
  7. NEORAL [Suspect]
     Route: 048
  8. STEROID [Suspect]
     Route: 048
     Dates: start: 20020403
  9. STEROID [Suspect]
     Route: 048
     Dates: start: 20020812, end: 20020827

REACTIONS (4)
  - CYTOMEGALOVIRUS INFECTION [None]
  - LEUKOPENIA [None]
  - RENAL CELL CARCINOMA STAGE UNSPECIFIED [None]
  - THERAPEUTIC AGENT TOXICITY [None]
